FAERS Safety Report 13255182 (Version 1)
Quarter: 2017Q1

REPORT INFORMATION
  Report Type: Spontaneous
  Country: ES (occurrence: ES)
  Receive Date: 20170221
  Receipt Date: 20170221
  Transmission Date: 20170428
  Serious: Yes (Hospitalization)
  Sender: FDA-Public Use
  Company Number: ES-US WORLDMEDS, LLC-USW201702-000283

PATIENT
  Age: 63 Year
  Sex: Female

DRUGS (6)
  1. APOMORPHINE HYDROCHLORIDE [Suspect]
     Active Substance: APOMORPHINE HYDROCHLORIDE
     Indication: PARKINSON^S DISEASE
     Dates: start: 2011
  2. L-DOPA/ BENSERAZIDE [Concomitant]
  3. AMANTADINE [Concomitant]
     Active Substance: AMANTADINE
     Indication: PARKINSON^S DISEASE
  4. ROTIGOTINE [Concomitant]
     Active Substance: ROTIGOTINE
     Indication: PARKINSON^S DISEASE
  5. ROTIGOTINE [Concomitant]
     Active Substance: ROTIGOTINE
  6. L-DOPA/ BENSERAZIDE [Concomitant]
     Indication: PARKINSON^S DISEASE

REACTIONS (1)
  - Haemolytic anaemia [Recovered/Resolved]
